FAERS Safety Report 11189201 (Version 1)
Quarter: 2015Q2

REPORT INFORMATION
  Report Type: Spontaneous
  Country: US (occurrence: None)
  Receive Date: 20150612
  Receipt Date: 20150612
  Transmission Date: 20150821
  Serious: No
  Sender: FDA-Public Use
  Company Number: None

PATIENT
  Age: 6 Year
  Sex: Male
  Weight: 24.04 kg

DRUGS (1)
  1. ABILIFY [Suspect]
     Active Substance: ARIPIPRAZOLE
     Indication: OPPOSITIONAL DEFIANT DISORDER
     Route: 048

REACTIONS (3)
  - Aggression [None]
  - Abnormal behaviour [None]
  - Product substitution issue [None]

NARRATIVE: CASE EVENT DATE: 20150516
